FAERS Safety Report 9991367 (Version 1)
Quarter: 2014Q1

REPORT INFORMATION
  Report Type: Report from Study
  Country: US (occurrence: US)
  Receive Date: 20140310
  Receipt Date: 20140310
  Transmission Date: 20141002
  Serious: No
  Sender: FDA-Public Use
  Company Number: US-ABBVIE-13P-163-1129556-00

PATIENT
  Age: 43 Year
  Sex: Male

DRUGS (6)
  1. HUMIRA [Suspect]
     Indication: PSORIASIS
     Dosage: START OF EVERY WEEK NOT OBTAINED
     Dates: start: 20130311, end: 20130715
  2. UNKNOWN INFUSION [Concomitant]
     Indication: CEREBROSPINAL FLUID RETENTION
     Dosage: 3-DAY
     Route: 042
  3. CYMBALTA [Concomitant]
     Indication: NERVOUS SYSTEM DISORDER
  4. VALIUM [Concomitant]
     Indication: HEADACHE
  5. MELOXIM [Concomitant]
     Indication: HEADACHE
     Dosage: DAILY
  6. VICODIN [Concomitant]
     Indication: HEADACHE

REACTIONS (3)
  - Mass [Unknown]
  - Injection site mass [Recovered/Resolved]
  - Neck pain [Unknown]
